FAERS Safety Report 5807133-3 (Version None)
Quarter: 2008Q3

REPORT INFORMATION
  Report Type: 
  Country: None (occurrence: None)
  Receive Date: 20080711
  Receipt Date: 20080630
  Transmission Date: 20090109
  Serious: Yes (Other)
  Sender: FDA-Public Use
  Company Number: US-WATSON-2008-03934

PATIENT
  Sex: Female

DRUGS (5)
  1. CYCLOBENZAPRINE HYDROCHLORIDE (WATSON LABORATORIES) [Suspect]
     Indication: DRUG USE FOR UNKNOWN INDICATION
     Dosage: UNK, SINGLE
     Route: 048
     Dates: start: 20071101
  2. BUPROPION HYDROCHLORIDE SUSTAINED RELEASE [Suspect]
     Indication: DEPRESSION
     Dosage: 300 MG, QAM AND 150 MG QPM
     Route: 048
     Dates: start: 20050501, end: 20080201
  3. BUPROPION HYDROCHLORIDE SUSTAINED RELEASE [Suspect]
     Dosage: 150 MG, BID
     Route: 048
     Dates: start: 20050401, end: 20050501
  4. ETHANOL [Suspect]
     Indication: DRUG USE FOR UNKNOWN INDICATION
     Dosage: UNK
     Route: 065
     Dates: start: 20071101
  5. BIRTH CONTROL [Concomitant]
     Indication: CONTRACEPTION
     Dosage: UNK

REACTIONS (15)
  - AMNESIA [None]
  - ANOREXIA [None]
  - ASTHENIA [None]
  - CONVULSION [None]
  - DEPRESSION [None]
  - GRAND MAL CONVULSION [None]
  - HEADACHE [None]
  - HYPERHIDROSIS [None]
  - INTENTIONAL OVERDOSE [None]
  - STRESS [None]
  - TEMPOROMANDIBULAR JOINT SYNDROME [None]
  - TINNITUS [None]
  - WEIGHT DECREASED [None]
  - WEIGHT INCREASED [None]
  - WEIGHT LOSS POOR [None]
